FAERS Safety Report 25185115 (Version 1)
Quarter: 2025Q2

REPORT INFORMATION
  Report Type: Spontaneous
  Country: GB (occurrence: GB)
  Receive Date: 20250410
  Receipt Date: 20250410
  Transmission Date: 20250716
  Serious: Yes (Life-Threatening, Hospitalization)
  Sender: MYLAN
  Company Number: GB-MYLANLABS-2025M1030900

PATIENT
  Age: 54 Year
  Sex: Male

DRUGS (40)
  1. LEVETIRACETAM [Suspect]
     Active Substance: LEVETIRACETAM
     Indication: Status epilepticus
  2. LEVETIRACETAM [Suspect]
     Active Substance: LEVETIRACETAM
     Route: 065
  3. LEVETIRACETAM [Suspect]
     Active Substance: LEVETIRACETAM
     Route: 065
  4. LEVETIRACETAM [Suspect]
     Active Substance: LEVETIRACETAM
  5. VALPROIC ACID [Suspect]
     Active Substance: VALPROIC ACID
     Indication: Status epilepticus
  6. VALPROIC ACID [Suspect]
     Active Substance: VALPROIC ACID
     Route: 065
  7. VALPROIC ACID [Suspect]
     Active Substance: VALPROIC ACID
     Route: 065
  8. VALPROIC ACID [Suspect]
     Active Substance: VALPROIC ACID
  9. LACOSAMIDE [Suspect]
     Active Substance: LACOSAMIDE
     Indication: Status epilepticus
  10. LACOSAMIDE [Suspect]
     Active Substance: LACOSAMIDE
     Route: 065
  11. LACOSAMIDE [Suspect]
     Active Substance: LACOSAMIDE
     Route: 065
  12. LACOSAMIDE [Suspect]
     Active Substance: LACOSAMIDE
  13. CLOBAZAM [Suspect]
     Active Substance: CLOBAZAM
     Indication: Status epilepticus
  14. CLOBAZAM [Suspect]
     Active Substance: CLOBAZAM
     Route: 065
  15. CLOBAZAM [Suspect]
     Active Substance: CLOBAZAM
     Route: 065
  16. CLOBAZAM [Suspect]
     Active Substance: CLOBAZAM
  17. PHENOBARBITAL [Suspect]
     Active Substance: PHENOBARBITAL
     Indication: Status epilepticus
  18. PHENOBARBITAL [Suspect]
     Active Substance: PHENOBARBITAL
     Route: 065
  19. PHENOBARBITAL [Suspect]
     Active Substance: PHENOBARBITAL
     Route: 065
  20. PHENOBARBITAL [Suspect]
     Active Substance: PHENOBARBITAL
  21. PROPOFOL [Suspect]
     Active Substance: PROPOFOL
     Indication: Status epilepticus
  22. PROPOFOL [Suspect]
     Active Substance: PROPOFOL
     Route: 065
  23. PROPOFOL [Suspect]
     Active Substance: PROPOFOL
     Route: 065
  24. PROPOFOL [Suspect]
     Active Substance: PROPOFOL
  25. ALFENTANIL HYDROCHLORIDE [Suspect]
     Active Substance: ALFENTANIL HYDROCHLORIDE
     Indication: Status epilepticus
  26. ALFENTANIL HYDROCHLORIDE [Suspect]
     Active Substance: ALFENTANIL HYDROCHLORIDE
     Route: 065
  27. ALFENTANIL HYDROCHLORIDE [Suspect]
     Active Substance: ALFENTANIL HYDROCHLORIDE
     Route: 065
  28. ALFENTANIL HYDROCHLORIDE [Suspect]
     Active Substance: ALFENTANIL HYDROCHLORIDE
  29. MIDAZOLAM [Suspect]
     Active Substance: MIDAZOLAM
     Indication: Status epilepticus
  30. MIDAZOLAM [Suspect]
     Active Substance: MIDAZOLAM
     Route: 065
  31. MIDAZOLAM [Suspect]
     Active Substance: MIDAZOLAM
     Route: 065
  32. MIDAZOLAM [Suspect]
     Active Substance: MIDAZOLAM
  33. HUMAN PLASMA [Concomitant]
     Active Substance: HUMAN PLASMA
     Indication: Encephalitis autoimmune
  34. HUMAN PLASMA [Concomitant]
     Active Substance: HUMAN PLASMA
     Route: 065
  35. HUMAN PLASMA [Concomitant]
     Active Substance: HUMAN PLASMA
     Route: 065
  36. HUMAN PLASMA [Concomitant]
     Active Substance: HUMAN PLASMA
  37. RITUXIMAB [Concomitant]
     Active Substance: RITUXIMAB
     Indication: Encephalitis autoimmune
  38. RITUXIMAB [Concomitant]
     Active Substance: RITUXIMAB
     Route: 065
  39. RITUXIMAB [Concomitant]
     Active Substance: RITUXIMAB
     Route: 065
  40. RITUXIMAB [Concomitant]
     Active Substance: RITUXIMAB

REACTIONS (1)
  - Drug ineffective [Unknown]
